FAERS Safety Report 11315521 (Version 3)
Quarter: 2015Q3

REPORT INFORMATION
  Report Type: Spontaneous
  Country: DE (occurrence: DE)
  Receive Date: 20150728
  Receipt Date: 20150821
  Transmission Date: 20151125
  Serious: Yes (Death, Hospitalization)
  Sender: FDA-Public Use
  Company Number: DE-AMGEN-DEUSP2015074501

PATIENT
  Sex: Female

DRUGS (14)
  1. PREDNISONE. [Suspect]
     Active Substance: PREDNISONE
     Indication: B-CELL LYMPHOMA
     Dosage: 100 MG, 5 DAY, A CYCLE FOR 59 DAYS
     Route: 048
     Dates: start: 20150109, end: 20150308
  2. DOXORUBICINE [Suspect]
     Active Substance: DOXORUBICIN
     Indication: B-CELL LYMPHOMA
     Dosage: 87 MG, ONE TIMES IN TWO WEEKS FOR 15 DAYS
     Route: 042
     Dates: start: 20150218, end: 20150304
  3. HYDROCHLOROTHIAZIDE. [Concomitant]
     Active Substance: HYDROCHLOROTHIAZIDE
     Indication: POLYURIA
     Dosage: 25 MG, 1 TIMES A DAY
     Route: 048
  4. MELPERONE HCL [Concomitant]
     Active Substance: MELPERONE HYDROCHLORIDE
     Indication: SEDATIVE THERAPY
     Dosage: 50 MG, 1 TIMES A DAY
     Route: 048
  5. CHOLECALCIFEROL [Concomitant]
     Active Substance: CHOLECALCIFEROL
     Indication: VITAMIN SUPPLEMENTATION
     Dosage: 2000 IU, 1 TIMES A DAY
     Route: 048
     Dates: start: 201502
  6. PREGABALIN. [Concomitant]
     Active Substance: PREGABALIN
     Indication: PAIN
     Dosage: 150 MG, 1 TIMES A DAY
     Route: 048
  7. RIVAROXABAN [Concomitant]
     Active Substance: RIVAROXABAN
     Indication: PROPHYLAXIS
     Dosage: 20 MG, 1 TIMES A DAY
     Route: 048
  8. PEGFILGRASTIM [Suspect]
     Active Substance: PEGFILGRASTIM
     Indication: B-CELL LYMPHOMA
     Dosage: 6 MG, 1 TIMES IN 2 WEEKS FOR 15 DAYS
     Route: 058
     Dates: start: 20150221, end: 20150307
  9. RITUXIMAB [Suspect]
     Active Substance: RITUXIMAB
     Indication: B-CELL LYMPHOMA
     Dosage: 652.5 MG, 1 TIMES IN 2 WEEKS FOR 40 DAYS
     Route: 042
     Dates: start: 20150123, end: 20150303
  10. VINCRISTINE [Suspect]
     Active Substance: VINCRISTINE
     Indication: B-CELL LYMPHOMA
     Dosage: 3.48 MG, 1 TIMES IN 2 WEEKS FOR 15 DAYS
     Route: 042
     Dates: start: 20150218, end: 20150304
  11. METHOTREXATE DISODIUM [Suspect]
     Active Substance: METHOTREXATE SODIUM
     Indication: B-CELL LYMPHOMA
     Dosage: 2610 MG, 2 TIMES FOR 8 DAY (S)
     Route: 042
     Dates: start: 20150126, end: 20150202
  12. CYCLOPHOSPHAMIDE. [Suspect]
     Active Substance: CYCLOPHOSPHAMIDE
     Indication: B-CELL LYMPHOMA
     Dosage: 1305 MG, 1 TIMES IN 2 WEEKS FOR 15 DAYS
     Route: 042
     Dates: start: 20150218, end: 20150304
  13. BISOPROLOL [Concomitant]
     Active Substance: BISOPROLOL
     Indication: HYPERTENSION
     Dosage: 2.5 MG, 1 TIMES A DAY
     Route: 048
  14. LEUCOVORIN. [Suspect]
     Active Substance: LEUCOVORIN
     Indication: B-CELL LYMPHOMA
     Dosage: 78 MG, 2 TIMES FOR 7 DAYS
     Route: 042
     Dates: start: 20150127, end: 20150202

REACTIONS (5)
  - Death [Fatal]
  - General physical health deterioration [Recovering/Resolving]
  - Urinary tract infection [Recovered/Resolved]
  - Pyrexia [Recovered/Resolved]
  - Fatigue [Recovering/Resolving]

NARRATIVE: CASE EVENT DATE: 20150616
